FAERS Safety Report 7527827-1 (Version None)
Quarter: 2011Q2

REPORT INFORMATION
  Report Type: 
  Country: None (occurrence: None)
  Receive Date: 20110607
  Receipt Date: 20110601
  Transmission Date: 20111010
  Serious: Yes (Other)
  Sender: FDA-Public Use
  Company Number: JP-PFIZER INC-2011118914

PATIENT
  Age: 54 Year
  Sex: Female

DRUGS (1)
  1. LIPITOR [Suspect]
     Dosage: 5 MG, DAILY
     Route: 048

REACTIONS (2)
  - HAEMORRHAGE [None]
  - ORAL DISCOMFORT [None]
